FAERS Safety Report 20831628 (Version 3)
Quarter: 2022Q3

REPORT INFORMATION
  Report Type: Spontaneous
  Country: US (occurrence: US)
  Receive Date: 20220516
  Receipt Date: 20220901
  Transmission Date: 20221027
  Serious: Yes (Other)
  Sender: FDA-Public Use
  Company Number: US-GILEAD-2022-0581609

PATIENT
  Age: 53 Year
  Sex: Male

DRUGS (1)
  1. TRUVADA [Suspect]
     Active Substance: EMTRICITABINE\TENOFOVIR DISOPROXIL FUMARATE
     Indication: Prophylaxis against HIV infection
     Dosage: UNK
     Route: 048
     Dates: start: 20161002, end: 20200908

REACTIONS (7)
  - Osteoporosis [Not Recovered/Not Resolved]
  - Skeletal injury [Unknown]
  - Tooth injury [Unknown]
  - Bone density decreased [Not Recovered/Not Resolved]
  - Foot fracture [Recovered/Resolved]
  - Tooth loss [Not Recovered/Not Resolved]
  - Osteopenia [Not Recovered/Not Resolved]

NARRATIVE: CASE EVENT DATE: 20190601
